FAERS Safety Report 7089441-4 (Version None)
Quarter: 2010Q4

REPORT INFORMATION
  Report Type: 
  Country: None (occurrence: None)
  Receive Date: 20101108
  Receipt Date: 20101103
  Transmission Date: 20110411
  Serious: Yes (Other)
  Sender: FDA-Public Use
  Company Number: NO-PFIZER INC-2010141235

PATIENT
  Sex: Female

DRUGS (1)
  1. CHAMPIX [Suspect]
     Dosage: UNK

REACTIONS (1)
  - FACE OEDEMA [None]
